FAERS Safety Report 12426616 (Version 1)
Quarter: 2016Q2

REPORT INFORMATION
  Report Type: Report from Study
  Country: BR (occurrence: BR)
  Receive Date: 20160601
  Receipt Date: 20160601
  Transmission Date: 20160815
  Serious: Yes (Life-Threatening, Hospitalization)
  Sender: FDA-Public Use
  Company Number: PHHY2016BR075044

PATIENT
  Sex: Female
  Weight: 55 kg

DRUGS (2)
  1. VITAMINS NOS [Concomitant]
     Active Substance: VITAMINS
     Indication: PRODUCT USED FOR UNKNOWN INDICATION
     Route: 065
  2. EXJADE [Suspect]
     Active Substance: DEFERASIROX
     Indication: SICKLE CELL ANAEMIA
     Dosage: 20 MG/KG, QD (2 DF OF 500 MG)
     Route: 048

REACTIONS (4)
  - Apparent death [Unknown]
  - Musculoskeletal stiffness [Unknown]
  - Sickle cell anaemia with crisis [Unknown]
  - Pain [Unknown]
